FAERS Safety Report 8909390 (Version 1)
Quarter: 2012Q4

REPORT INFORMATION
  Report Type: 
  Country: US (occurrence: US)
  Receive Date: 20121114
  Receipt Date: 20121114
  Transmission Date: 20130627
  Serious: Yes (Other)
  Sender: FDA-Public Use
  Company Number: US-MYLANLABS-2012S1022882

PATIENT
  Age: 52 Year
  Sex: Male

DRUGS (8)
  1. RITONAVIR [Suspect]
     Indication: HIV INFECTION
     Route: 065
  2. FLUTICASONE PROPIONATE [Interacting]
     Indication: BRONCHITIS CHRONIC
     Dosage: 250 microg twice daily; then increased to 500 microg twice daily
     Route: 055
  3. FLUTICASONE PROPIONATE [Interacting]
     Indication: BRONCHITIS CHRONIC
     Dosage: 500 microg twice daily
     Route: 055
  4. FLUTICASONE PROPIONATE [Interacting]
     Indication: BRONCHITIS CHRONIC
     Dosage: 0.05%
     Route: 045
  5. FLUCONAZOLE [Interacting]
     Indication: ORAL CANDIDIASIS
     Dosage: 400mg daily
     Route: 048
  6. EFAVIRENZ [Concomitant]
     Indication: HIV INFECTION
     Route: 065
  7. ATAZANAVIR [Concomitant]
     Indication: HIV INFECTION
     Route: 065
  8. DILTIAZEM [Concomitant]
     Indication: ESSENTIAL HYPERTENSION
     Route: 065

REACTIONS (5)
  - Drug interaction [Recovered/Resolved]
  - Cushing^s syndrome [Recovered/Resolved]
  - Secondary adrenocortical insufficiency [Recovered/Resolved]
  - Immunosuppression [Recovered/Resolved]
  - Drug interaction [Recovered/Resolved]
